FAERS Safety Report 8378679-1 (Version None)
Quarter: 2012Q2

REPORT INFORMATION
  Report Type: 
  Country: None (occurrence: None)
  Receive Date: 20120522
  Receipt Date: 20120515
  Transmission Date: 20120825
  Serious: Yes (Hospitalization)
  Sender: FDA-Public Use
  Company Number: US-B.I. PHARMACEUTICALS,INC./RIDGEFIELD-2012-BP-10822BP

PATIENT
  Sex: Male
  Weight: 8.6 kg

DRUGS (12)
  1. ALBUTEROL [Concomitant]
  2. SOLIRIS [Suspect]
     Indication: HAEMOLYTIC URAEMIC SYNDROME
     Route: 042
     Dates: start: 20120201
  3. CONCENTRATED TYLENOL INFANT DROPS [Concomitant]
  4. BENADRYL [Concomitant]
  5. LASIX [Suspect]
     Indication: CARDIAC FAILURE CONGESTIVE
     Dosage: 6 ML
     Route: 048
  6. CATAPRES-TTS-1 [Suspect]
     Dosage: 0.3 MG
     Route: 061
  7. METOLAZONE [Concomitant]
  8. PENICILLIN V POTASSIUM [Concomitant]
  9. THIAZIDES, PLAIN [Concomitant]
  10. SOLIRIS [Suspect]
     Route: 042
     Dates: start: 20120404
  11. POTASSIUM CHLORIDE [Suspect]
     Indication: SUPPLEMENTATION THERAPY
     Dosage: 30 ML
     Route: 048
  12. AMLODIPINE BESYLATE [Concomitant]

REACTIONS (10)
  - ABDOMINAL PAIN [None]
  - FATIGUE [None]
  - NATURAL KILLER CELL COUNT DECREASED [None]
  - VIRAL UPPER RESPIRATORY TRACT INFECTION [None]
  - EYE SWELLING [None]
  - DEHYDRATION [None]
  - HEART RATE INCREASED [None]
  - BLOOD UREA INCREASED [None]
  - HYPERTENSION [None]
  - THROMBOCYTOPENIA [None]
